FAERS Safety Report 11558802 (Version 1)
Quarter: 2015Q3

REPORT INFORMATION
  Report Type: Spontaneous
  Country: US (occurrence: None)
  Receive Date: 20150925
  Receipt Date: 20150925
  Transmission Date: 20151125
  Serious: Yes (Life-Threatening, Hospitalization, Disabling, Other)
  Sender: FDA-Public Use
  Company Number: None

PATIENT
  Age: 68 Year
  Sex: Female
  Weight: 72.58 kg

DRUGS (5)
  1. SYNTHROID [Concomitant]
     Active Substance: LEVOTHYROXINE SODIUM
  2. ZEDIA [Concomitant]
  3. VIT.D [Concomitant]
  4. WOMEN^S DAILY [Concomitant]
  5. HYDRALAZINE [Suspect]
     Active Substance: HYDRALAZINE HYDROCHLORIDE

REACTIONS (8)
  - Hyperventilation [None]
  - Chills [None]
  - Headache [None]
  - Cardiac flutter [None]
  - Nausea [None]
  - Dyskinesia [None]
  - Superficial vein prominence [None]
  - Feeling cold [None]

NARRATIVE: CASE EVENT DATE: 20150907
